FAERS Safety Report 6122040-7 (Version None)
Quarter: 2009Q1

REPORT INFORMATION
  Report Type: 
  Country: None (occurrence: None)
  Receive Date: 20090316
  Receipt Date: 20090312
  Transmission Date: 20090719
  Serious: Yes (Death, Other)
  Sender: FDA-Public Use
  Company Number: 2009SP002428

PATIENT
  Age: 51 Year
  Sex: Male

DRUGS (4)
  1. POSACONAZOLE [Suspect]
     Indication: ANTIFUNGAL PROPHYLAXIS
     Dosage: 200 MG; TID
     Dates: start: 20070505, end: 20070514
  2. CASPOFUNGIN [Concomitant]
  3. AMBISOME [Concomitant]
  4. FLUCONAZOLE [Concomitant]

REACTIONS (3)
  - DRUG INEFFECTIVE [None]
  - GRAFT VERSUS HOST DISEASE [None]
  - SYSTEMIC CANDIDA [None]
